FAERS Safety Report 15811495 (Version 2)
Quarter: 2019Q1

REPORT INFORMATION
  Report Type: Spontaneous
  Country: US (occurrence: US)
  Receive Date: 20190111
  Receipt Date: 20190226
  Transmission Date: 20190417
  Serious: Yes (Other)
  Sender: FDA-Public Use
  Company Number: US-AMGEN INC.-USASP2019002926

PATIENT
  Age: 64 Year
  Sex: Female
  Weight: 65.31 kg

DRUGS (9)
  1. AIMOVIG [Suspect]
     Active Substance: ERENUMAB-AOOE
     Indication: MIGRAINE PROPHYLAXIS
     Dosage: 70 MG, QMO
     Route: 065
     Dates: start: 201809, end: 201811
  2. ESTRADIOL. [Concomitant]
     Active Substance: ESTRADIOL
     Dosage: 1 DF, QD
     Route: 048
  3. ONDANSETRON [Concomitant]
     Active Substance: ONDANSETRON
     Dosage: 1 DF, Q3MO (DISINTEGRATING TABLET)
     Route: 048
  4. FROVATRIPTAN SUCCINATE. [Concomitant]
     Active Substance: FROVATRIPTAN SUCCINATE
     Indication: HEADACHE
     Dosage: 1 DF, 1 TABLET AT ONSET OF HEADACHE, MAY REPEAT EVERY 2 HOURS AS NEEDED MAX 3 TABS IN 24 HRS
     Route: 048
  5. PROGESTERONE. [Concomitant]
     Active Substance: PROGESTERONE
     Dosage: 1 DF, QD (IN THE EVENING)
     Route: 048
  6. ACYCLOVIR. [Concomitant]
     Active Substance: ACYCLOVIR
     Dosage: 1 DF, BID
     Route: 048
  7. ACETAMINOPHEN W/HYDROCODONE [Concomitant]
     Active Substance: ACETAMINOPHEN\HYDROCODONE
     Dosage: 1 DF, QMO
     Route: 048
  8. TESTOSTERONE. [Concomitant]
     Active Substance: TESTOSTERONE
     Dosage: UNK POWDER TAKE AS DIRECTED
  9. RIZATRIPTAN BENZOATE. [Concomitant]
     Active Substance: RIZATRIPTAN BENZOATE
     Indication: MIGRAINE
     Dosage: 1 DF, AS NECESSARY/ REPEAT IN 2 HOURS AS NEEDED MAX 3 TABS PER 24 HOURS
     Route: 048

REACTIONS (1)
  - Macular fibrosis [Not Recovered/Not Resolved]

NARRATIVE: CASE EVENT DATE: 20181122
